FAERS Safety Report 15426236 (Version 5)
Quarter: 2018Q4

REPORT INFORMATION
  Report Type: Spontaneous
  Country: ES (occurrence: ES)
  Receive Date: 20180925
  Receipt Date: 20181101
  Transmission Date: 20190204
  Serious: Yes (Hospitalization, Disabling, Other)
  Sender: FDA-Public Use
  Company Number: ES-ASTRAZENECA-2018SF20422

PATIENT
  Age: 44 Year
  Sex: Male
  Weight: 72 kg

DRUGS (10)
  1. KREON [Concomitant]
     Active Substance: PANCRELIPASE
     Indication: PANCREATIC CALCIFICATION
     Dates: start: 2012
  2. KREON [Concomitant]
     Active Substance: PANCRELIPASE
     Indication: PANCREATIC CALCIFICATION
     Dates: start: 2015
  3. NEXIUM [Suspect]
     Active Substance: ESOMEPRAZOLE MAGNESIUM
     Indication: SUPPLEMENTATION THERAPY
     Dosage: 20.0MG UNKNOWN
     Route: 048
     Dates: start: 2018
  4. NEXIUM CONTROL [Suspect]
     Active Substance: ESOMEPRAZOLE MAGNESIUM
     Indication: SUPPLEMENTATION THERAPY
     Dosage: 20.0MG UNKNOWN
     Route: 048
     Dates: start: 2011
  5. NEXIUM [Suspect]
     Active Substance: ESOMEPRAZOLE MAGNESIUM
     Indication: SUPPLEMENTATION THERAPY
     Dosage: 20.0MG UNKNOWN
     Route: 048
     Dates: start: 2011
  6. NEXIUM CONTROL [Suspect]
     Active Substance: ESOMEPRAZOLE MAGNESIUM
     Indication: SUPPLEMENTATION THERAPY
     Dosage: 20.0MG UNKNOWN
     Route: 048
     Dates: start: 2018
  7. NEXIUM CONTROL [Suspect]
     Active Substance: ESOMEPRAZOLE MAGNESIUM
     Indication: SUPPLEMENTATION THERAPY
     Dosage: 20.0MG UNKNOWN
     Route: 048
     Dates: start: 2018
  8. NEXIUM CONTROL [Suspect]
     Active Substance: ESOMEPRAZOLE MAGNESIUM
     Indication: SUPPLEMENTATION THERAPY
     Dosage: 20.0MG UNKNOWN
     Route: 048
     Dates: start: 2018
  9. NEXIUM [Suspect]
     Active Substance: ESOMEPRAZOLE MAGNESIUM
     Indication: SUPPLEMENTATION THERAPY
     Dosage: 20.0MG UNKNOWN
     Route: 048
     Dates: start: 2018
  10. NEXIUM [Suspect]
     Active Substance: ESOMEPRAZOLE MAGNESIUM
     Indication: SUPPLEMENTATION THERAPY
     Dosage: 20.0MG UNKNOWN
     Route: 048
     Dates: start: 2018

REACTIONS (18)
  - Obstructive airways disorder [Unknown]
  - Vomiting [Unknown]
  - Dizziness [Unknown]
  - Vertigo [Unknown]
  - Fatigue [Unknown]
  - Microsleep [Unknown]
  - Cough [Unknown]
  - Feeling abnormal [Unknown]
  - Vision blurred [Unknown]
  - Poisoning [Not Recovered/Not Resolved]
  - Pancreatic calcification [Not Recovered/Not Resolved]
  - Pancreatitis chronic [Unknown]
  - Pancreatic failure [Unknown]
  - Apnoea [Recovered/Resolved]
  - Choking [Unknown]
  - Muscle spasms [Unknown]
  - Malaise [Unknown]
  - Dyspnoea [Unknown]

NARRATIVE: CASE EVENT DATE: 2011
